FAERS Safety Report 5562504-8 (Version None)
Quarter: 2007Q4

REPORT INFORMATION
  Report Type: 
  Country: None (occurrence: None)
  Receive Date: 20071217
  Receipt Date: 20071210
  Transmission Date: 20080405
  Serious: Yes (Other)
  Sender: FDA-Public Use
  Company Number: GB-WYE-G00652007

PATIENT
  Sex: Female
  Weight: 82 kg

DRUGS (2)
  1. EFFEXOR XR [Suspect]
     Route: 048
     Dates: start: 20030101
  2. EFFEXOR XR [Suspect]
     Route: 048

REACTIONS (2)
  - ABSCESS [None]
  - CONDITION AGGRAVATED [None]
